FAERS Safety Report 8142125-3 (Version None)
Quarter: 2012Q1

REPORT INFORMATION
  Report Type: 
  Country: None (occurrence: None)
  Receive Date: 20120103
  Receipt Date: 20110902
  Transmission Date: 20120608
  Serious: No
  Sender: FDA-Public Use
  Company Number: AE-2011-001308

PATIENT
  Age: 57 Year
  Sex: Female
  Weight: 108.8633 kg

DRUGS (4)
  1. PEGASYS [Concomitant]
  2. SLEEPAID/CAREONE (OTHER HYPNOTICS AND SEDATIVES) [Concomitant]
  3. INCIVEK [Suspect]
     Dosage: 2250 MG (750 MG,3 IN 1 D),ORAL
     Route: 048
     Dates: start: 20110811
  4. RIBAVIRIN [Concomitant]

REACTIONS (2)
  - DIARRHOEA [None]
  - ANORECTAL DISCOMFORT [None]
